FAERS Safety Report 7829167-X (Version None)
Quarter: 2011Q4

REPORT INFORMATION
  Report Type: 
  Country: None (occurrence: None)
  Receive Date: 20111020
  Receipt Date: 20111016
  Transmission Date: 20120403
  Serious: Yes (Other)
  Sender: FDA-Public Use
  Company Number: PHHY2011MX92106

PATIENT
  Age: 80 Year
  Sex: Female

DRUGS (1)
  1. ONBREZ [Suspect]
     Indication: CHRONIC OBSTRUCTIVE PULMONARY DISEASE
     Dosage: 1 DF, QD
     Dates: start: 20110801

REACTIONS (1)
  - BRONCHIAL DISORDER [None]
